FAERS Safety Report 23520787 (Version 1)
Quarter: 2024Q1

REPORT INFORMATION
  Report Type: 
  Country: None (occurrence: None)
  Receive Date: 20240214
  Receipt Date: 20240214
  Transmission Date: 20240410
  Serious: No
  Sender: FDA-Public Use
  Company Number: CA-ROCHE-3503739

PATIENT
  Weight: 79 kg

DRUGS (2)
  1. OCRELIZUMAB [Suspect]
     Active Substance: OCRELIZUMAB
  2. PANTOPRAZOLE [Suspect]
     Active Substance: PANTOPRAZOLE

REACTIONS (5)
  - Fatigue [None]
  - Gastrooesophageal reflux disease [None]
  - Infusion related reaction [None]
  - Syncope [None]
  - Throat irritation [None]
